FAERS Safety Report 11026798 (Version 2)
Quarter: 2015Q2

REPORT INFORMATION
  Report Type: Spontaneous
  Country: US (occurrence: US)
  Receive Date: 20150414
  Receipt Date: 20150525
  Transmission Date: 20150821
  Serious: No
  Sender: FDA-Public Use
  Company Number: US-JNJFOC-20121207420

PATIENT
  Sex: Female

DRUGS (2)
  1. ORTHO TRI CYCLEN [Suspect]
     Active Substance: ETHINYL ESTRADIOL\NORGESTIMATE
     Indication: CONTRACEPTION
     Route: 048
  2. TENOFOVIR DISOPROXIL FUMARATE [Interacting]
     Active Substance: TENOFOVIR DISOPROXIL FUMARATE
     Indication: PRODUCT USED FOR UNKNOWN INDICATION
     Dosage: FOR 7 DAYS DURING 2 CONSECUTIVE 28DAY CONTRACEPTIVE CYCLES
     Route: 065

REACTIONS (6)
  - Dysmenorrhoea [Unknown]
  - Headache [Unknown]
  - Rhinitis [Unknown]
  - Drug interaction [Unknown]
  - Pharyngitis [Unknown]
  - Rash [Unknown]
